FAERS Safety Report 6429224-9 (Version None)
Quarter: 2009Q4

REPORT INFORMATION
  Report Type: 
  Country: None (occurrence: None)
  Receive Date: 20091105
  Receipt Date: 20091023
  Transmission Date: 20100525
  Serious: Yes (Other)
  Sender: FDA-Public Use
  Company Number: PHHY2009IT46930

PATIENT
  Sex: Female

DRUGS (2)
  1. TAREG [Suspect]
     Dosage: 320 MG, UNK
     Route: 048
  2. LYRICA [Concomitant]
     Dosage: UNK

REACTIONS (3)
  - PRESYNCOPE [None]
  - VERTIGO [None]
  - VOMITING [None]
